FAERS Safety Report 24867310 (Version 1)
Quarter: 2025Q1

REPORT INFORMATION
  Report Type: Report from Study
  Country: CN (occurrence: CN)
  Receive Date: 20250121
  Receipt Date: 20250121
  Transmission Date: 20250409
  Serious: Yes (Hospitalization)
  Sender: ACCORD
  Company Number: CN-HENLIUS-24CN014661

PATIENT
  Age: 65 Year
  Sex: Female
  Weight: 55 kg

DRUGS (12)
  1. TRASTUZUMAB [Suspect]
     Active Substance: TRASTUZUMAB
     Indication: Invasive ductal breast carcinoma
     Dosage: 483 MILLIGRAM, Q3W; STRENGTH: 150 MILLIGRAM
     Route: 042
     Dates: start: 20230201, end: 20230201
  2. DOCETAXEL [Concomitant]
     Active Substance: DOCETAXEL
     Indication: Invasive ductal breast carcinoma
     Dosage: 118 MILLIGRAM, Q3W
     Route: 042
     Dates: start: 20230201, end: 20230406
  3. DOXORUBICIN [Concomitant]
     Active Substance: DOXORUBICIN
     Indication: Invasive ductal breast carcinoma
     Dosage: 94.8 MILLIGRAM, Q3W
     Route: 042
     Dates: start: 20230607
  4. CYCLOPHOSPHAMIDE [Concomitant]
     Active Substance: CYCLOPHOSPHAMIDE
     Indication: Invasive ductal breast carcinoma
     Dosage: 948 MILLIGRAM, Q3W
     Route: 042
     Dates: start: 20230607
  5. DOXORUBICIN [Concomitant]
     Active Substance: DOXORUBICIN
     Indication: Invasive ductal breast carcinoma
     Dosage: 75.8 MILLIGRAM, Q3W
     Route: 042
     Dates: start: 20230809, end: 20230809
  6. CYCLOPHOSPHAMIDE [Concomitant]
     Active Substance: CYCLOPHOSPHAMIDE
     Indication: Invasive ductal breast carcinoma
     Dosage: 758 MILLIGRAM, Q3W
     Route: 042
     Dates: start: 20230809, end: 20230809
  7. TRASTUZUMAB [Suspect]
     Active Substance: TRASTUZUMAB
     Indication: Invasive ductal breast carcinoma
     Dosage: 371.7 MILLIGRAM, Q3W; STRENGTH: 150 MILLIGRAM
     Route: 042
     Dates: end: 20230406
  8. TRASTUZUMAB [Suspect]
     Active Substance: TRASTUZUMAB
     Indication: Invasive ductal breast carcinoma
     Dosage: 496 MILLIGRAM, Q3W; STRENGTH: 150 MILLIGRAM
     Route: 042
     Dates: start: 20230921, end: 20230921
  9. TRASTUZUMAB [Suspect]
     Active Substance: TRASTUZUMAB
     Indication: Invasive ductal breast carcinoma
     Dosage: 371.7 MILLIGRAM, Q3W; STRENGTH: 150 MILLIGRAM
     Route: 042
  10. TRASTUZUMAB [Suspect]
     Active Substance: TRASTUZUMAB
     Indication: Invasive ductal breast carcinoma
     Dosage: 333.9 MILLIGRAM, Q3W; STRENGTH: 150 MILLIGRAM
     Route: 042
     Dates: end: 20240327
  11. TRASTUZUMAB [Suspect]
     Active Substance: TRASTUZUMAB
     Indication: Invasive ductal breast carcinoma
     Dosage: STRENGTH: 150 MILLIGRAM, Q3W
     Route: 042
     Dates: start: 20240429, end: 20240429
  12. TRASTUZUMAB [Suspect]
     Active Substance: TRASTUZUMAB
     Indication: Invasive ductal breast carcinoma
     Dosage: 333 MILLIGRAM, Q3W; STRENGTH: 150 MILLIGRAM
     Route: 042
     Dates: start: 20240520, end: 20240520

REACTIONS (3)
  - Gamma-glutamyltransferase increased [Not Recovered/Not Resolved]
  - Aspartate aminotransferase increased [Not Recovered/Not Resolved]
  - Alanine aminotransferase increased [Recovered/Resolved]

NARRATIVE: CASE EVENT DATE: 20240126
